FAERS Safety Report 7504975 (Version 3)
Quarter: 2012Q4

REPORT INFORMATION
  Report Type: 
  Country: US (occurrence: US)
  Receive Date: 20100728
  Receipt Date: 20121121
  Transmission Date: 20130627
  Serious: Yes (Other)
  Sender: FDA-Public Use
  Company Number: US-BAYER-201028099NA

PATIENT
  Age: 46 Year
  Sex: Male
  Weight: 99 kg

DRUGS (20)
  1. TRASYLOL [Suspect]
     Indication: OPEN HEART SURGERY
     Dosage: UNK
     Dates: start: 20050928
  2. AMICAR [Concomitant]
     Indication: CORONARY ARTERY BYPASS GRAFT
     Dosage: 5 g bolus followed by 50cc/hr infusion
     Route: 042
     Dates: start: 20050928
  3. NORVASC [Concomitant]
  4. LOTENSIN [Concomitant]
     Dosage: 40 mg, QD
  5. ACETYLSALICYLIC ACID (} 100 MG) [Concomitant]
  6. AVANDAMET [Concomitant]
  7. DYAZIDE [Concomitant]
     Dosage: 37.5 mg, UNK
     Route: 048
  8. RELAFEN [Concomitant]
     Dosage: UNK UNK, QD
  9. XANAX [Concomitant]
  10. AVANDIA [Concomitant]
     Dosage: 100 mg, QD
  11. ANCEF [Concomitant]
     Dosage: 2 g, UNK
     Dates: start: 20050928
  12. REGLAN [Concomitant]
     Dosage: 20 mg, UNK
     Dates: start: 20050928
  13. VERSED [Concomitant]
     Dosage: 7 mg, UNK
     Dates: start: 20050928
  14. SUFENTANIL [Concomitant]
     Dosage: UNK
     Dates: start: 20050928
  15. AMIODARONE [Concomitant]
     Dosage: UNK
     Dates: start: 20050928
  16. EPINEPHRINE [Concomitant]
     Dosage: UNK
     Dates: start: 20050928
  17. NEOSYNEPHRINE [Concomitant]
     Dosage: UNK
     Dates: start: 20050928
  18. LEVOPHED [Concomitant]
     Dosage: UNK
     Dates: start: 20050928
  19. HEPARIN [Concomitant]
     Dosage: UNK
     Dates: start: 20050928
  20. PROTAMINE [Concomitant]
     Dosage: 300 mg, UNK
     Dates: start: 20050928

REACTIONS (8)
  - Renal failure [Unknown]
  - Pain [Unknown]
  - Anxiety [Unknown]
  - Injury [Unknown]
  - Emotional distress [Unknown]
  - Depression [Unknown]
  - Fear [Unknown]
  - Nervousness [Unknown]
